FAERS Safety Report 10078933 (Version 2)
Quarter: 2014Q2

REPORT INFORMATION
  Report Type: Spontaneous
  Country: DE (occurrence: DE)
  Receive Date: 20140415
  Receipt Date: 20140415
  Transmission Date: 20141212
  Serious: Yes (Disabling)
  Sender: FDA-Public Use
  Company Number: DE-SA-2013SA129224

PATIENT
  Age: 63 Year
  Sex: Male
  Weight: 80 kg

DRUGS (5)
  1. ARAVA [Suspect]
     Indication: PSORIATIC ARTHROPATHY
     Route: 048
     Dates: start: 201103
  2. LITALIR [Suspect]
     Indication: MYELOPROLIFERATIVE DISORDER
     Route: 048
  3. PANKREATIN [Suspect]
     Indication: PANCREATIC INSUFFICIENCY
     Route: 065
  4. IBUPROFEN [Concomitant]
     Dates: start: 201007
  5. PREDNISOLONE [Concomitant]
     Dosage: AT 3-DAY INTERVAL
     Dates: end: 201106

REACTIONS (8)
  - Tachycardia paroxysmal [Recovered/Resolved]
  - Chest discomfort [Recovered/Resolved]
  - Palpitations [Not Recovered/Not Resolved]
  - Sleep disorder [Not Recovered/Not Resolved]
  - Dry mouth [Not Recovered/Not Resolved]
  - Cold sweat [Recovered/Resolved]
  - Pollakiuria [Not Recovered/Not Resolved]
  - Dyspnoea [Not Recovered/Not Resolved]
